FAERS Safety Report 6155648-3 (Version None)
Quarter: 2009Q2

REPORT INFORMATION
  Report Type: 
  Country: None (occurrence: None)
  Receive Date: 20090415
  Receipt Date: 20090407
  Transmission Date: 20091009
  Serious: Yes (Hospitalization)
  Sender: FDA-Public Use
  Company Number: ES-BRISTOL-MYERS SQUIBB COMPANY-14586499

PATIENT

DRUGS (4)
  1. CETUXIMAB [Suspect]
     Indication: COLON CANCER
     Dosage: CETUXIMAB 5 MG/ML.
     Route: 042
  2. OXALIPLATIN [Suspect]
     Indication: COLON CANCER
     Route: 042
  3. FLUOROURACIL [Suspect]
     Indication: COLON CANCER
     Route: 042
  4. FOLINIC ACID [Suspect]
     Indication: COLON CANCER
     Route: 042

REACTIONS (1)
  - VENOUS THROMBOSIS [None]
